FAERS Safety Report 9395682 (Version 1)
Quarter: 2013Q3

REPORT INFORMATION
  Report Type: Spontaneous
  Country: US (occurrence: US)
  Receive Date: 20130711
  Receipt Date: 20130711
  Transmission Date: 20140515
  Serious: No
  Sender: FDA-Public Use
  Company Number: US-BRISTOL-MYERS SQUIBB COMPANY-18786996

PATIENT
  Age: 21 Year
  Sex: Female

DRUGS (9)
  1. NULOJIX [Suspect]
     Indication: RENAL TRANSPLANT
     Dosage: APPRX 1 MONTH TO DATE.?DOSE 2:12APR2013?DOSE 3:26APR2013
     Route: 042
     Dates: start: 20130329
  2. PROGRAF [Concomitant]
     Dosage: 2 MG AM AND PM DECREASING TO 1 MG BID TILL OFF
  3. CELLCEPT [Concomitant]
  4. BACTRIM [Concomitant]
  5. COLACE [Concomitant]
     Dosage: AM/PM
  6. PRILOSEC [Concomitant]
  7. VITAMIN D [Concomitant]
     Dosage: 1DF: 1000 UNITS
  8. FERROUS SULFATE [Concomitant]
  9. MULTIVITAMIN [Concomitant]

REACTIONS (2)
  - Fatigue [Recovering/Resolving]
  - Graft complication [Recovering/Resolving]
